FAERS Safety Report 15646680 (Version 1)
Quarter: 2018Q4

REPORT INFORMATION
  Report Type: Spontaneous
  Country: DE (occurrence: DE)
  Receive Date: 20181122
  Receipt Date: 20181122
  Transmission Date: 20190205
  Serious: Yes (Hospitalization, Other)
  Sender: FDA-Public Use
  Company Number: DE-AUROBINDO-AUR-APL-2018-056294

PATIENT
  Age: 62 Year
  Sex: Female

DRUGS (2)
  1. OFLOXACIN. [Suspect]
     Active Substance: OFLOXACIN
     Indication: SINUSITIS
     Dosage: UNK
     Route: 065
     Dates: start: 2013
  2. LEVOFLOXACIN. [Suspect]
     Active Substance: LEVOFLOXACIN
     Indication: SINUSITIS
     Dosage: UNK, SINCE 2005 1-2 TIMES A YEAR
     Route: 065
     Dates: start: 2005

REACTIONS (4)
  - Renal necrosis [Recovered/Resolved]
  - Encephalopathy [Recovered/Resolved]
  - Systemic inflammatory response syndrome [Recovered/Resolved]
  - Aortic dissection [Recovered/Resolved]

NARRATIVE: CASE EVENT DATE: 20181108
